FAERS Safety Report 4558007-X (Version None)
Quarter: 2005Q1

REPORT INFORMATION
  Report Type: 
  Country: None (occurrence: None)
  Receive Date: 20050121
  Receipt Date: 20040427
  Transmission Date: 20050727
  Serious: No
  Sender: FDA-Public Use
  Company Number: US-BRISTOL-MYERS SQUIBB COMPANY-12576781

PATIENT
  Age: 29 Year
  Sex: Male

DRUGS (7)
  1. SERZONE [Suspect]
     Indication: SCHIZOPHRENIA
  2. ZYPREXA [Concomitant]
  3. GEODON [Concomitant]
  4. PROLIXIN [Concomitant]
  5. PREVACID [Concomitant]
  6. AMBIEN [Concomitant]
  7. LEVOTHROID [Concomitant]

REACTIONS (3)
  - ASPARTATE AMINOTRANSFERASE INCREASED [None]
  - GASTROOESOPHAGEAL REFLUX DISEASE [None]
  - UROBILIN URINE PRESENT [None]
